FAERS Safety Report 17185668 (Version 1)
Quarter: 2019Q4

REPORT INFORMATION
  Report Type: Spontaneous
  Country: GB (occurrence: GB)
  Receive Date: 20191220
  Receipt Date: 20191220
  Transmission Date: 20200122
  Serious: Yes (Other)
  Sender: FDA-Public Use
  Company Number: GB-PERRIGO-19GB015925

PATIENT

DRUGS (1)
  1. NORZOL 40MG/ML PL00427/0068 [Suspect]
     Active Substance: METRONIDAZOLE BENZOATE
     Indication: GINGIVITIS
     Dosage: 400 MG, QD
     Route: 048
     Dates: start: 20191122, end: 20191122

REACTIONS (6)
  - Nausea [Unknown]
  - Confusional state [Unknown]
  - Paraesthesia [Not Recovered/Not Resolved]
  - Peripheral coldness [Unknown]
  - Dizziness [Not Recovered/Not Resolved]
  - Paralysis [Recovering/Resolving]

NARRATIVE: CASE EVENT DATE: 20191122
